FAERS Safety Report 5858335-1 (Version None)
Quarter: 2008Q3

REPORT INFORMATION
  Report Type: 
  Country: None (occurrence: None)
  Receive Date: 20080826
  Receipt Date: 20080819
  Transmission Date: 20090109
  Serious: Yes (Other)
  Sender: FDA-Public Use
  Company Number: PHHY2008GB11836

PATIENT
  Sex: Male

DRUGS (6)
  1. DIOVAN [Suspect]
     Indication: HYPERTENSION
     Dosage: 160 MG/DAY
     Dates: start: 20050101
  2. BENDROFLUAZIDE [Concomitant]
     Indication: HYPERTENSION
     Dosage: 2.5 MG/DAY
  3. THYROXINE [Concomitant]
     Indication: HYPERTENSION
     Dosage: 100 MG/DAY
  4. DOXAZOSIN MESYLATE [Concomitant]
     Indication: HYPERTENSION
     Dosage: 8 MG/DAY
  5. ASPIRIN [Concomitant]
     Indication: HYPERTENSION
     Dosage: 75 MG/DAY
  6. SIMVASTATIN [Concomitant]
     Indication: HYPERTENSION
     Dosage: 20 MG/DAY

REACTIONS (4)
  - ANAEMIA [None]
  - BLOOD ERYTHROPOIETIN DECREASED [None]
  - HAEMOGLOBIN DECREASED [None]
  - RETICULOCYTE COUNT DECREASED [None]
